FAERS Safety Report 17686154 (Version 2)
Quarter: 2020Q2

REPORT INFORMATION
  Report Type: Spontaneous
  Country: US (occurrence: US)
  Receive Date: 20200420
  Receipt Date: 20200504
  Transmission Date: 20200714
  Serious: Yes (Hospitalization, Other)
  Sender: FDA-Public Use
  Company Number: US-UPSHER-SMITH LABORATORIES, LLC-2020USL00182

PATIENT
  Age: 24 Year
  Sex: Male
  Weight: 181.41 kg

DRUGS (15)
  1. CLARITIN [Concomitant]
     Active Substance: LORATADINE
  2. CLOBAZAM. [Suspect]
     Active Substance: CLOBAZAM
     Dosage: 10 MG (4 ML), 2X/DAY
     Route: 048
     Dates: start: 2019, end: 2019
  3. CLOBAZAM. [Suspect]
     Active Substance: CLOBAZAM
     Dosage: 12.5 MG (5 ML), 2X/DAY
     Dates: start: 2019, end: 201910
  4. ONE A DAY VITAMINS [Concomitant]
     Active Substance: VITAMINS
  5. CLOBAZAM. [Suspect]
     Active Substance: CLOBAZAM
     Dosage: 7.5 MG (3 ML), 2X/DAY
     Route: 048
     Dates: start: 2019, end: 2019
  6. VITAMIN C [Concomitant]
     Active Substance: ASCORBIC ACID
  7. UNSPECIFIED MEDICATION FOR EPILEPSY [Concomitant]
  8. HAIR SKIN AND NAIL VITAMIN [Concomitant]
  9. UNSPECIFIED MEDICATION FOR EPILEPSY [Concomitant]
  10. CLOBAZAM. [Suspect]
     Active Substance: CLOBAZAM
     Dosage: 10 MG (4 ML), 2X/DAY
     Route: 048
     Dates: start: 20200403
  11. CLOBAZAM. [Suspect]
     Active Substance: CLOBAZAM
     Indication: EPILEPSY
     Dosage: UNK
     Route: 048
     Dates: start: 201901, end: 2019
  12. VITAMIN D [Concomitant]
     Active Substance: VITAMIN D NOS
  13. PROBIOTIC [Concomitant]
     Active Substance: PROBIOTICS NOS
  14. CLOBAZAM. [Suspect]
     Active Substance: CLOBAZAM
     Dosage: 15 MG (6 ML), 2X/DAY
     Route: 048
     Dates: start: 201910, end: 20200402
  15. FIBER [Concomitant]
     Active Substance: PSYLLIUM HUSK

REACTIONS (9)
  - Aggression [Recovering/Resolving]
  - Insomnia [Recovering/Resolving]
  - White blood cell disorder [Unknown]
  - Thrombosis [Unknown]
  - Anger [Not Recovered/Not Resolved]
  - Weight increased [Not Recovered/Not Resolved]
  - Abnormal behaviour [Not Recovered/Not Resolved]
  - Abdominal pain upper [Unknown]
  - Vomiting [Unknown]

NARRATIVE: CASE EVENT DATE: 2019
